FAERS Safety Report 7625958-9 (Version None)
Quarter: 2011Q3

REPORT INFORMATION
  Report Type: 
  Country: None (occurrence: None)
  Receive Date: 20110713
  Receipt Date: 20110708
  Transmission Date: 20111222
  Serious: Yes (Death, Life-Threatening, Hospitalization)
  Sender: FDA-Public Use
  Company Number: 2011SP031666

PATIENT
  Age: 29 Year
  Sex: Female

DRUGS (1)
  1. CHORIONIC GONADOTROPIN [Suspect]
     Indication: OVULATION INDUCTION

REACTIONS (26)
  - OVARIAN HYPERSTIMULATION SYNDROME [None]
  - VULVOVAGINAL SWELLING [None]
  - PLEURAL EFFUSION [None]
  - LEUKOCYTOSIS [None]
  - HYPONATRAEMIA [None]
  - PETECHIAE [None]
  - PULMONARY ALVEOLAR HAEMORRHAGE [None]
  - LOSS OF CONSCIOUSNESS [None]
  - RESPIRATORY ARREST [None]
  - CEREBRAL THROMBOSIS [None]
  - CAROTID ARTERY THROMBOSIS [None]
  - PULMONARY OEDEMA [None]
  - CONVULSION [None]
  - HYPERGLYCAEMIA [None]
  - GENERALISED OEDEMA [None]
  - HYPOTENSION [None]
  - HAEMORRHAGE SUBCUTANEOUS [None]
  - BRAIN OEDEMA [None]
  - EMBOLIC STROKE [None]
  - HYPOALBUMINAEMIA [None]
  - JUGULAR VEIN THROMBOSIS [None]
  - PULMONARY ARTERY THROMBOSIS [None]
  - HAEMOCONCENTRATION [None]
  - RENAL ARTERY THROMBOSIS [None]
  - RENAL HAEMORRHAGE [None]
  - DEEP VEIN THROMBOSIS [None]
